FAERS Safety Report 16718303 (Version 2)
Quarter: 2019Q3

REPORT INFORMATION
  Report Type: Spontaneous
  Country: US (occurrence: US)
  Receive Date: 20190820
  Receipt Date: 20190822
  Transmission Date: 20191005
  Serious: No
  Sender: FDA-Public Use
  Company Number: US-JNJFOC-20190817023

PATIENT
  Age: 82 Year
  Sex: Female
  Weight: 86.26 kg

DRUGS (1)
  1. TYLENOL [Suspect]
     Active Substance: ACETAMINOPHEN
     Indication: ARTHRITIS
     Route: 048

REACTIONS (2)
  - Pain [Recovered/Resolved]
  - Inappropriate schedule of product administration [Recovered/Resolved]
